FAERS Safety Report 21979188 (Version 2)
Quarter: 2023Q1

REPORT INFORMATION
  Report Type: Spontaneous
  Country: JP (occurrence: JP)
  Receive Date: 20230210
  Receipt Date: 20230221
  Transmission Date: 20230418
  Serious: Yes (Death, Life-Threatening, Hospitalization, Other)
  Sender: FDA-Public Use
  Company Number: JP-PFIZER INC-PV202300025721

PATIENT
  Age: 54 Year
  Sex: Female
  Weight: 65 kg

DRUGS (6)
  1. METHOTREXATE SODIUM [Suspect]
     Active Substance: METHOTREXATE SODIUM
     Indication: Rheumatoid arthritis
     Dosage: 8 MG, WEEKLY
  2. METHOTREXATE SODIUM [Suspect]
     Active Substance: METHOTREXATE SODIUM
     Dosage: 4 MG
  3. INFLIXIMAB [Concomitant]
     Active Substance: INFLIXIMAB
     Indication: Rheumatoid arthritis
     Dosage: 3 MG/KG ONCE DAILY FOR 2 TO 8 WEEKS
     Route: 042
  4. ETANERCEPT [Concomitant]
     Active Substance: ETANERCEPT
     Indication: Rheumatoid arthritis
     Dosage: 50 MG, WEEKLY
     Route: 058
  5. TOCILIZUMAB [Concomitant]
     Active Substance: TOCILIZUMAB
     Indication: Rheumatoid arthritis
     Dosage: 8 MG/KG, DAILY FOR 4 WEEKS
     Route: 042
  6. GOLIMUMAB [Concomitant]
     Active Substance: GOLIMUMAB
     Indication: Rheumatoid arthritis
     Dosage: 100 MG
     Route: 058

REACTIONS (6)
  - Hepatic failure [Fatal]
  - Non-alcoholic steatohepatitis [Unknown]
  - Liver injury [Unknown]
  - Thrombocytopenia [Unknown]
  - Varices oesophageal [Unknown]
  - Off label use [Unknown]
